FAERS Safety Report 15846516 (Version 2)
Quarter: 2019Q1

REPORT INFORMATION
  Report Type: Spontaneous
  Country: BE (occurrence: BE)
  Receive Date: 20190120
  Receipt Date: 20190213
  Transmission Date: 20190417
  Serious: Yes (Hospitalization)
  Sender: FDA-Public Use
  Company Number: BE-ROCHE-2242222

PATIENT
  Sex: Male

DRUGS (2)
  1. GAZYVARO [Suspect]
     Active Substance: OBINUTUZUMAB
     Indication: B-CELL LYMPHOMA REFRACTORY
     Route: 042
     Dates: end: 201811
  2. BENDAMUSTINE [Suspect]
     Active Substance: BENDAMUSTINE
     Indication: B-CELL LYMPHOMA REFRACTORY
     Route: 065

REACTIONS (2)
  - Haemophagocytic lymphohistiocytosis [Unknown]
  - Hepatic function abnormal [Not Recovered/Not Resolved]

NARRATIVE: CASE EVENT DATE: 201901
